FAERS Safety Report 8266670-5 (Version None)
Quarter: 2012Q2

REPORT INFORMATION
  Report Type: 
  Country: None (occurrence: None)
  Receive Date: 20120408
  Receipt Date: 20120328
  Transmission Date: 20120825
  Serious: Yes (Other)
  Sender: FDA-Public Use
  Company Number: JP-VERTEX PHARMACEUTICALS INC.-AE-2012-002370

PATIENT
  Age: 63 Year
  Sex: Male

DRUGS (15)
  1. TELAVIC (TELAPREVIR) [Suspect]
     Route: 048
     Dates: start: 20120213, end: 20120213
  2. REBETOL [Concomitant]
     Indication: HEPATITIS C
     Route: 048
     Dates: start: 20120210, end: 20120213
  3. ALBUMIN TANNATE [Concomitant]
     Route: 048
     Dates: start: 20120213, end: 20120219
  4. ALLOPURINOL [Concomitant]
     Route: 048
     Dates: start: 20120312
  5. PEGINTFERON ALFA-2B [Concomitant]
     Indication: HEPATITIS C
     Route: 058
     Dates: start: 20120210
  6. REBETOL [Concomitant]
     Route: 048
     Dates: start: 20120227, end: 20120318
  7. LEBARAMINE [Concomitant]
     Route: 048
  8. MIYA BM [Concomitant]
     Route: 048
     Dates: start: 20120213, end: 20120219
  9. TELAVIC (TELAPREVIR) [Suspect]
     Indication: HEPATITIS C
     Route: 048
     Dates: start: 20120210, end: 20120212
  10. TELAVIC (TELAPREVIR) [Suspect]
     Route: 048
     Dates: start: 20120305
  11. PROHEPARUM [Concomitant]
     Route: 048
     Dates: start: 20120227
  12. REBETOL [Concomitant]
     Route: 048
     Dates: start: 20120319
  13. URSO 250 [Concomitant]
     Route: 048
  14. CLOBETASOL PROPIONATE [Concomitant]
     Route: 061
  15. FERROUS CITRATE [Concomitant]
     Route: 048

REACTIONS (7)
  - PYREXIA [None]
  - MALAISE [None]
  - RENAL FAILURE [None]
  - NAUSEA [None]
  - RASH [None]
  - DECREASED APPETITE [None]
  - DEHYDRATION [None]
